FAERS Safety Report 25307226 (Version 1)
Quarter: 2025Q2

REPORT INFORMATION
  Report Type: Spontaneous
  Country: US (occurrence: US)
  Receive Date: 20250513
  Receipt Date: 20250513
  Transmission Date: 20250717
  Serious: Yes (Death, Other)
  Sender: AMGEN
  Company Number: US-AMGEN-USASP2025091282

PATIENT

DRUGS (3)
  1. RITUXIMAB [Suspect]
     Active Substance: RITUXIMAB
     Indication: Chemotherapy
     Route: 065
  2. METHOTREXATE [Concomitant]
     Active Substance: METHOTREXATE
     Route: 040
  3. GLUCARPIDASE [Concomitant]
     Active Substance: GLUCARPIDASE

REACTIONS (8)
  - Malignant neoplasm progression [Fatal]
  - Death [Fatal]
  - Neutropenia [Unknown]
  - Diabetes mellitus [Unknown]
  - Renal impairment [Unknown]
  - Hypertension [Unknown]
  - Hypertransaminasaemia [Unknown]
  - Mucosal inflammation [Unknown]
